FAERS Safety Report 8437940-2 (Version None)
Quarter: 2012Q2

REPORT INFORMATION
  Report Type: 
  Country: None (occurrence: None)
  Receive Date: 20120614
  Receipt Date: 20120523
  Transmission Date: 20120825
  Serious: No
  Sender: FDA-Public Use
  Company Number: US-AMGEN-USASP2012021781

PATIENT
  Age: 79 Year
  Sex: Female
  Weight: 48.98 kg

DRUGS (2)
  1. PROLIA [Suspect]
     Indication: SENILE OSTEOPOROSIS
     Dosage: 60 MG, Q6MO
     Route: 058
     Dates: start: 20120405, end: 20120405
  2. PROLIA [Suspect]
     Dosage: 60 MG, Q6MO
     Route: 030
     Dates: start: 20111129, end: 20111129

REACTIONS (2)
  - INCORRECT ROUTE OF DRUG ADMINISTRATION [None]
  - INAPPROPRIATE SCHEDULE OF DRUG ADMINISTRATION [None]
